FAERS Safety Report 7446062-9 (Version None)
Quarter: 2011Q2

REPORT INFORMATION
  Report Type: 
  Country: None (occurrence: None)
  Receive Date: 20110429
  Receipt Date: 20110419
  Transmission Date: 20111010
  Serious: Yes (Hospitalization)
  Sender: FDA-Public Use
  Company Number: US-ACTELION-A-NJ2010-42478

PATIENT

DRUGS (4)
  1. TRACLEER [Suspect]
     Dosage: UNK
     Route: 048
  2. TRACLEER [Suspect]
     Indication: PULMONARY ARTERIAL HYPERTENSION
     Dosage: UNK
     Route: 048
     Dates: start: 20100428
  3. COUMADIN [Concomitant]
  4. TADALAFIL [Concomitant]

REACTIONS (5)
  - PNEUMONIA [None]
  - SEPSIS [None]
  - BRONCHITIS [None]
  - DYSPNOEA [None]
  - FLUID OVERLOAD [None]
